FAERS Safety Report 19138781 (Version 2)
Quarter: 2021Q2

REPORT INFORMATION
  Report Type: Report from Study
  Country: IT (occurrence: IT)
  Receive Date: 20210415
  Receipt Date: 20210422
  Transmission Date: 20210717
  Serious: Yes (Hospitalization, Other)
  Sender: FDA-Public Use
  Company Number: IT-BIOVITRUM-2021IT3651

PATIENT
  Age: 4 Month
  Sex: Male
  Weight: 7 kg

DRUGS (3)
  1. SYNAGIS [Suspect]
     Active Substance: PALIVIZUMAB
     Indication: ANTIVIRAL PROPHYLAXIS
     Route: 030
  2. SYNAGIS [Suspect]
     Active Substance: PALIVIZUMAB
     Dosage: 1,08 ML WEIGHT OF PATIENT 7.210 KG
     Route: 030
     Dates: end: 20210211
  3. SYNAGIS [Suspect]
     Active Substance: PALIVIZUMAB
     Indication: RESPIRATORY SYNCYTIAL VIRUS INFECTION
     Route: 030
     Dates: start: 20201110, end: 20210211

REACTIONS (6)
  - Respiratory symptom [Recovering/Resolving]
  - Bronchiolitis [Recovering/Resolving]
  - Oedema peripheral [Recovering/Resolving]
  - Cyanosis [Recovering/Resolving]
  - Thrombocytosis [Recovering/Resolving]
  - Thrombocytopenia [Recovering/Resolving]

NARRATIVE: CASE EVENT DATE: 202102
